FAERS Safety Report 5982950-8 (Version None)
Quarter: 2008Q4

REPORT INFORMATION
  Report Type: 
  Country: None (occurrence: None)
  Receive Date: 20081208
  Receipt Date: 20071130
  Transmission Date: 20090506
  Serious: Yes (Other)
  Sender: FDA-Public Use
  Company Number: US-AMGEN-STX254922

PATIENT
  Sex: Male

DRUGS (1)
  1. ENBREL [Suspect]
     Indication: RHEUMATOID ARTHRITIS
     Route: 058
     Dates: start: 20010501

REACTIONS (4)
  - CARDIAC FAILURE [None]
  - INJECTION SITE RASH [None]
  - INJECTION SITE URTICARIA [None]
  - TENDONITIS [None]
